FAERS Safety Report 5683591-2 (Version None)
Quarter: 2008Q1

REPORT INFORMATION
  Report Type: 
  Country: None (occurrence: None)
  Receive Date: 20080326
  Receipt Date: 20070906
  Transmission Date: 20080703
  Serious: Yes (Other)
  Sender: FDA-Public Use
  Company Number: 6037056

PATIENT
  Age: 68 Year
  Sex: Female

DRUGS (5)
  1. METFORMIN (TABLET) (MEMTFORMIN) [Suspect]
     Indication: TYPE 1 DIABETES MELLITUS
     Dosage: 2550 MG ORAL
     Route: 048
     Dates: start: 20070723
  2. AMARYL [Suspect]
     Indication: TYPE 1 DIABETES MELLITUS
     Dosage: 12 MG (12 MG, 1 D); 4 MG (4 MG, 1D) ORAL
     Route: 048
     Dates: start: 20070724, end: 20070808
  3. AMARYL [Suspect]
     Indication: TYPE 1 DIABETES MELLITUS
     Dosage: 12 MG (12 MG, 1 D); 4 MG (4 MG, 1D) ORAL
     Route: 048
     Dates: start: 20070809
  4. SIMVASTATIN [Concomitant]
  5. LOSARTAN POTASSIUM [Concomitant]

REACTIONS (4)
  - ASTHENIA [None]
  - HYPOGLYCAEMIA [None]
  - ORAL INTAKE REDUCED [None]
  - OVERDOSE [None]
